FAERS Safety Report 8738482 (Version 3)
Quarter: 2014Q2

REPORT INFORMATION
  Report Type: Spontaneous
  Country: FR (occurrence: FR)
  Receive Date: 20120823
  Receipt Date: 20140609
  Transmission Date: 20141212
  Serious: Yes (Hospitalization, Other)
  Sender: FDA-Public Use
  Company Number: FR-009507513-1208FRA006653

PATIENT
  Age: 38 Year
  Sex: Male
  Weight: 62 kg

DRUGS (7)
  1. VICTRELIS [Suspect]
     Indication: CHRONIC HEPATITIS C
     Dosage: 800 MG, TID
     Route: 048
     Dates: start: 20120511, end: 20120814
  2. PEGASYS [Concomitant]
     Indication: CHRONIC HEPATITIS C
     Dosage: 180 MICROGRAM, QW
     Route: 058
     Dates: start: 20120405
  3. COPEGUS [Concomitant]
     Indication: CHRONIC HEPATITIS C
     Dosage: 400 MG, BID
     Route: 048
     Dates: start: 20120405, end: 20120806
  4. DEPAMIDE [Concomitant]
     Indication: PSYCHOTIC DISORDER
     Dosage: 1500 MG, QD
  5. LAROXYL [Concomitant]
     Indication: PSYCHOTIC DISORDER
     Dosage: 50 MG, QPM
     Route: 048
  6. PARKINANE RETARD [Concomitant]
     Indication: PSYCHOTIC DISORDER
     Dosage: 5 MG, QAM
     Route: 048
  7. DIPIPERON [Concomitant]
     Indication: PSYCHOTIC DISORDER
     Dosage: 160 MG, QD
     Route: 048

REACTIONS (1)
  - Pancreatitis acute [Recovered/Resolved]
